FAERS Safety Report 7443420-3 (Version None)
Quarter: 2011Q2

REPORT INFORMATION
  Report Type: 
  Country: None (occurrence: None)
  Receive Date: 20110428
  Receipt Date: 20090130
  Transmission Date: 20111010
  Serious: Yes (Hospitalization, Other)
  Sender: FDA-Public Use
  Company Number: DE-GENENTECH-317519

PATIENT
  Age: 77 Year
  Sex: Male

DRUGS (1)
  1. LUCENTIS [Suspect]
     Indication: MACULAR DEGENERATION
     Route: 031

REACTIONS (7)
  - SCIATICA [None]
  - EYE HAEMORRHAGE [None]
  - EYE INFLAMMATION [None]
  - VISUAL ACUITY REDUCED [None]
  - INTRAOCULAR PRESSURE INCREASED [None]
  - CATARACT OPERATION COMPLICATION [None]
  - OCULAR HYPERAEMIA [None]
